FAERS Safety Report 25422858 (Version 2)
Quarter: 2025Q2

REPORT INFORMATION
  Report Type: Spontaneous
  Country: CH (occurrence: CH)
  Receive Date: 20250611
  Receipt Date: 20250616
  Transmission Date: 20250716
  Serious: Yes (Hospitalization)
  Sender: PFIZER
  Company Number: CH-MLMSERVICE-20250530-PI526620-00285-4

PATIENT
  Age: 25 Year
  Sex: Male
  Weight: 55 kg

DRUGS (6)
  1. LORAZEPAM [Suspect]
     Active Substance: LORAZEPAM
  2. RISPERIDONE [Suspect]
     Active Substance: RISPERIDONE
     Indication: Antipsychotic therapy
  3. ESCITALOPRAM [Suspect]
     Active Substance: ESCITALOPRAM OXALATE
  4. VALPROATE SODIUM [Suspect]
     Active Substance: VALPROATE SODIUM
  5. ARIPIPRAZOLE [Suspect]
     Active Substance: ARIPIPRAZOLE
  6. LEVOMEPROMAZINE [Suspect]
     Active Substance: LEVOMEPROMAZINE

REACTIONS (4)
  - Neurogenic bladder [Unknown]
  - Constipation [Unknown]
  - Urinary retention [Recovering/Resolving]
  - Psychomotor hyperactivity [Unknown]
